FAERS Safety Report 16775106 (Version 1)
Quarter: 2019Q3

REPORT INFORMATION
  Report Type: Spontaneous
  Country: US (occurrence: US)
  Receive Date: 20190716
  Receipt Date: 20190716
  Transmission Date: 20191005
  Serious: No
  Sender: FDA-Public Use
  Company Number: None

PATIENT
  Sex: Female

DRUGS (1)
  1. HUMIRA [Suspect]
     Active Substance: ADALIMUMAB
     Indication: CROHN^S DISEASE
     Route: 058
     Dates: start: 20190219

REACTIONS (5)
  - Respiratory disorder [None]
  - Oropharyngeal pain [None]
  - Tonsillolith [None]
  - Epistaxis [None]
  - Tonsillitis [None]
